FAERS Safety Report 4861522-2 (Version None)
Quarter: 2005Q4

REPORT INFORMATION
  Report Type: 
  Country: None (occurrence: None)
  Receive Date: 20051220
  Receipt Date: 20051104
  Transmission Date: 20060501
  Serious: Yes (Hospitalization, Other)
  Sender: FDA-Public Use
  Company Number: FR-AVENTIS-200513662FR

PATIENT
  Age: 33 Year
  Sex: Male

DRUGS (4)
  1. LANTUS [Suspect]
     Indication: SUICIDE ATTEMPT
     Dates: start: 20051001, end: 20051001
  2. NOZINAN [Concomitant]
  3. HAVLANE [Concomitant]
  4. SUBUTEX [Concomitant]

REACTIONS (5)
  - HYPOGLYCAEMIA [None]
  - INCORRECT DOSE ADMINISTERED [None]
  - OVERDOSE [None]
  - SOMNOLENCE [None]
  - SUICIDE ATTEMPT [None]
